FAERS Safety Report 24262773 (Version 1)
Quarter: 2024Q3

REPORT INFORMATION
  Report Type: Spontaneous
  Country: GB (occurrence: GB)
  Receive Date: 20240829
  Receipt Date: 20240829
  Transmission Date: 20241016
  Serious: Yes (Other)
  Sender: DR REDDYS
  Company Number: None

PATIENT
  Age: 63 Year
  Sex: Female
  Weight: 80 kg

DRUGS (1)
  1. OLANZAPINE [Suspect]
     Active Substance: OLANZAPINE
     Indication: Generalised anxiety disorder
     Dates: start: 20140101

REACTIONS (1)
  - Parkinsonism [Not Recovered/Not Resolved]

NARRATIVE: CASE EVENT DATE: 20200101
